FAERS Safety Report 9527992 (Version 1)
Quarter: 2013Q1

REPORT INFORMATION
  Report Type: Spontaneous
  Country: US (occurrence: None)
  Receive Date: 20130314
  Receipt Date: 20130314
  Transmission Date: 20140127
  Serious: No
  Sender: FDA-Public Use
  Company Number: 1301USA009560

PATIENT
  Age: 22 Year
  Sex: Male
  Weight: 86.2 kg

DRUGS (3)
  1. PEGINTRON (PEGINTERFERON ALDA-2B [Suspect]
     Dosage: 150 MICROGRAM, QW, SUBCUTANEOUS
     Route: 058
  2. VICTRELIS (BOCEPREVIR) CAPSULE, 200MG [Suspect]
     Dosage: ORAL
     Route: 048
  3. RIBAPAK (RIBAVIRIN) [Suspect]
     Dosage: 1200/DAY, ORAL
     Route: 048

REACTIONS (5)
  - Syncope [None]
  - Feeling hot [None]
  - Flushing [None]
  - Hyperhidrosis [None]
  - Nausea [None]
